FAERS Safety Report 6464767-3 (Version None)
Quarter: 2009Q4

REPORT INFORMATION
  Report Type: 
  Country: None (occurrence: None)
  Receive Date: 20091201
  Receipt Date: 20091119
  Transmission Date: 20100525
  Serious: Yes (Hospitalization, Disabling)
  Sender: FDA-Public Use
  Company Number: PHHY2009JP48942

PATIENT
  Sex: Female
  Weight: 53 kg

DRUGS (7)
  1. DIOVAN HCT [Suspect]
     Indication: HYPERTENSION
     Dosage: 80/12.5 MG
     Route: 048
     Dates: start: 20090716, end: 20091029
  2. DIOVAN [Suspect]
     Indication: HYPERTENSION
     Dosage: 80 MG, DAILY (IN THE MORNING)
     Route: 048
     Dates: start: 20090518, end: 20091029
  3. DIOVAN [Suspect]
     Dosage: 80 MG, UNK
     Route: 048
     Dates: start: 20091030
  4. ADALAT CC [Concomitant]
     Indication: HYPERTENSION
     Dosage: UNK
     Route: 048
     Dates: start: 20090611
  5. FERROMIA [Concomitant]
     Indication: ANAEMIA
     Dosage: 60 MG, UNK
     Route: 048
     Dates: start: 20090518
  6. CALCIUM LACTATE [Concomitant]
     Indication: OSTEOPOROSIS
     Dosage: 1500 MG, UNK
     Route: 048
     Dates: start: 20090518
  7. DEPAS [Concomitant]
     Indication: INSOMNIA
     Dosage: 0.5 MG, UNK
     Route: 048
     Dates: start: 20090518

REACTIONS (3)
  - CEREBRAL INFARCTION [None]
  - LACUNAR INFARCTION [None]
  - PARALYSIS [None]
